FAERS Safety Report 9349146 (Version 2)
Quarter: 2013Q3

REPORT INFORMATION
  Report Type: Spontaneous
  Country: US (occurrence: US)
  Receive Date: 20130614
  Receipt Date: 20130711
  Transmission Date: 20140515
  Serious: Yes (Hospitalization, Other)
  Sender: FDA-Public Use
  Company Number: US-ASTRAZENECA-2013SE42070

PATIENT
  Age: 78 Year
  Sex: Female
  Weight: 88 kg

DRUGS (13)
  1. SYMBICORT [Suspect]
     Indication: CHRONIC OBSTRUCTIVE PULMONARY DISEASE
     Dosage: 160/4.5MCG, 2 PUFFS BID
     Route: 055
     Dates: start: 201204
  2. ANASTROLZOLE [Suspect]
     Indication: BREAST CANCER FEMALE
     Route: 048
     Dates: start: 201301
  3. LEVALBUTEROL [Concomitant]
     Indication: DYSPNOEA
     Dosage: 1.25 MG/3ML SOLUTION, 1 VIAL Q8H
     Route: 055
     Dates: start: 2011
  4. FUROSEMIDE [Concomitant]
     Indication: FLUID RETENTION
     Route: 048
     Dates: start: 2003
  5. LEVOTHYROXINE [Concomitant]
     Indication: THYROID DISORDER
     Route: 048
     Dates: start: 1973
  6. ALLOPURINOL [Concomitant]
     Indication: GOUT
     Route: 048
     Dates: start: 1973
  7. MINOCYLINE [Concomitant]
     Indication: RHEUMATOID ARTHRITIS
     Route: 048
     Dates: start: 2012
  8. PREDNISONE [Concomitant]
     Indication: RHEUMATOID ARTHRITIS
     Route: 048
     Dates: start: 2012
  9. ORPHENADINE P FORTE [Concomitant]
     Indication: MUSCLE SPASMS
     Route: 048
     Dates: start: 1973
  10. SPIRIVA HANDIHALER [Concomitant]
     Indication: LUNG DISORDER
     Dosage: 18 MCG/CP, DAILY
     Route: 055
     Dates: start: 201302
  11. PRADAXA [Concomitant]
     Indication: ANTICOAGULANT THERAPY
     Route: 048
     Dates: start: 201302
  12. ROPINIROLE HCL [Concomitant]
     Indication: DYSKINESIA
     Route: 048
     Dates: start: 201305
  13. PRISTIQUE ER [Concomitant]
     Indication: DEPRESSION
     Route: 048

REACTIONS (6)
  - Breast cancer female [Unknown]
  - Cardiac disorder [Unknown]
  - Respiratory disorder [Unknown]
  - Rheumatoid arthritis [Unknown]
  - Dyskinesia [Unknown]
  - Intentional drug misuse [Unknown]
